FAERS Safety Report 13607287 (Version 2)
Quarter: 2017Q2

REPORT INFORMATION
  Report Type: Spontaneous
  Country: US (occurrence: US)
  Receive Date: 20170602
  Receipt Date: 20170623
  Transmission Date: 20170830
  Serious: No
  Sender: FDA-Public Use
  Company Number: US-PFIZER INC-2017242473

PATIENT
  Age: 52 Year
  Sex: Male

DRUGS (4)
  1. OMEGA 3 XL [Concomitant]
     Indication: ANTIINFLAMMATORY THERAPY
     Dosage: 1200 MG, UNK
     Dates: start: 201704
  2. LEVOTHYROXINE. [Concomitant]
     Active Substance: LEVOTHYROXINE
     Indication: THYROID DISORDER
     Dosage: 225 UG, UNK
     Dates: start: 2007
  3. VITAMIN D3 [Concomitant]
     Active Substance: CHOLECALCIFEROL
     Indication: BONE PAIN
     Dosage: 2000 IU, UNK
     Dates: start: 201702
  4. XELJANZ XR [Suspect]
     Active Substance: TOFACITINIB CITRATE
     Indication: RHEUMATOID ARTHRITIS
     Dosage: 11 MG, UNK
     Dates: start: 201705

REACTIONS (1)
  - Acne [Not Recovered/Not Resolved]

NARRATIVE: CASE EVENT DATE: 20170516
